FAERS Safety Report 6662174-1 (Version None)
Quarter: 2010Q1

REPORT INFORMATION
  Report Type: 
  Country: None (occurrence: None)
  Receive Date: 20100331
  Receipt Date: 20100317
  Transmission Date: 20100710
  Serious: Yes (Hospitalization)
  Sender: FDA-Public Use
  Company Number: CI-MYLANLABS-2010S1004486

PATIENT
  Age: 45 Year
  Sex: Male
  Weight: 66 kg

DRUGS (10)
  1. STAVUDINE [Suspect]
     Indication: HIV INFECTION
     Route: 065
     Dates: start: 19991101, end: 20010701
  2. DIDANOSINE [Suspect]
     Indication: HIV INFECTION
     Route: 065
     Dates: start: 19991101, end: 20031001
  3. NELFINAVIR [Suspect]
     Indication: HIV INFECTION
     Route: 065
     Dates: start: 19991101, end: 20020701
  4. ZIDOVUDINE [Suspect]
     Indication: HIV INFECTION
     Route: 065
     Dates: start: 20010701, end: 20031001
  5. INDINAVIR [Suspect]
     Indication: HIV INFECTION
     Route: 065
     Dates: start: 20020701, end: 20031001
  6. ABACAVIR [Suspect]
     Indication: HIV INFECTION
     Route: 065
     Dates: start: 20031001
  7. LAMIVUDINE [Suspect]
     Indication: HIV INFECTION
     Route: 065
     Dates: start: 20031001
  8. SAQUINAVIR [Suspect]
     Indication: HIV INFECTION
     Route: 065
     Dates: start: 20031001, end: 20040701
  9. KALETRA                            /01506501/ [Suspect]
     Indication: HIV INFECTION
     Route: 065
     Dates: start: 20040701
  10. RITONAVIR [Suspect]
     Indication: HIV INFECTION
     Route: 065
     Dates: start: 20031001, end: 20040701

REACTIONS (2)
  - NEUROPATHY PERIPHERAL [None]
  - OSTEONECROSIS [None]
